FAERS Safety Report 5421332-4 (Version None)
Quarter: 2007Q3

REPORT INFORMATION
  Report Type: 
  Country: None (occurrence: None)
  Receive Date: 20070718
  Receipt Date: 20061212
  Transmission Date: 20080115
  Serious: Yes (Other)
  Sender: FDA-Public Use
  Company Number: 2006153644

PATIENT
  Age: 68 Year
  Sex: Female
  Weight: 80.7 kg

DRUGS (5)
  1. CELEBREX [Suspect]
     Indication: ARTHRITIS
     Dosage: 20 MG (20 MG,1 IN 1 D)
     Dates: start: 20061001
  2. BYETTA [Suspect]
     Indication: TYPE 2 DIABETES MELLITUS
     Dosage: (2 IN 1 D), SUBCUTANEOUS
     Route: 058
     Dates: start: 20061012
  3. LIPITOR [Concomitant]
  4. METFORMIN HCL [Concomitant]
  5. ENALAPRIL (ENALAPRIL) [Concomitant]

REACTIONS (5)
  - BLOOD GLUCOSE INCREASED [None]
  - HEADACHE [None]
  - NAUSEA [None]
  - SINUS HEADACHE [None]
  - WEIGHT DECREASED [None]
